FAERS Safety Report 15491085 (Version 2)
Quarter: 2018Q4

REPORT INFORMATION
  Report Type: Spontaneous
  Country: SE (occurrence: SE)
  Receive Date: 20181012
  Receipt Date: 20181025
  Transmission Date: 20190205
  Serious: Yes (Death, Life-Threatening)
  Sender: FDA-Public Use
  Company Number: SE-TEVA-2018-SE-963532

PATIENT
  Age: 72 Year
  Sex: Male

DRUGS (16)
  1. MORFIN [Concomitant]
     Active Substance: MORPHINE SULFATE
     Route: 065
  2. FURIX [Concomitant]
     Active Substance: FUROSEMIDE
     Route: 065
  3. TAVEGYL [Concomitant]
     Active Substance: CLEMASTINE FUMARATE
     Route: 065
  4. NOVORAPID [Concomitant]
     Active Substance: INSULIN ASPART
     Route: 065
  5. ELOCON [Concomitant]
     Active Substance: MOMETASONE FUROATE
     Route: 065
  6. ATIVAN [Concomitant]
     Active Substance: LORAZEPAM
     Route: 065
  7. FRAGMIN [Concomitant]
     Active Substance: DALTEPARIN SODIUM
     Route: 065
  8. MICROLAX [Concomitant]
     Route: 065
  9. ALVEDON [Concomitant]
     Active Substance: ACETAMINOPHEN
     Route: 065
  10. PEMBROLIZUMAB. [Suspect]
     Active Substance: PEMBROLIZUMAB
     Indication: MALIGNANT MELANOMA
     Route: 065
     Dates: start: 20170809, end: 20180309
  11. OMEPRAZOL [Concomitant]
     Active Substance: OMEPRAZOLE
     Route: 065
  12. HALDOL [Concomitant]
     Active Substance: HALOPERIDOL
     Route: 065
  13. OXASCAND [Concomitant]
     Active Substance: OXAZEPAM
     Route: 065
  14. PREDNISOLONE. [Suspect]
     Active Substance: PREDNISOLONE
     Dosage: 6 TR/DAY
     Route: 048
     Dates: start: 20180327
  15. BACTRIM [Suspect]
     Active Substance: SULFAMETHOXAZOLE\TRIMETHOPRIM
     Route: 065
     Dates: start: 20180807
  16. ARKOLAMYL [Concomitant]
     Active Substance: OLANZAPINE
     Route: 065

REACTIONS (1)
  - Stevens-Johnson syndrome [Fatal]

NARRATIVE: CASE EVENT DATE: 20180807
